FAERS Safety Report 20239371 (Version 1)
Quarter: 2021Q4

REPORT INFORMATION
  Report Type: Spontaneous
  Country: JP (occurrence: JP)
  Receive Date: 20211228
  Receipt Date: 20211228
  Transmission Date: 20220304
  Serious: Yes (Death, Hospitalization)
  Sender: FDA-Public Use
  Company Number: JP-DSJP-DSJ-2021-141922AA

PATIENT
  Age: 96 Year
  Sex: Female

DRUGS (2)
  1. EDOXABAN TOSYLATE [Suspect]
     Active Substance: EDOXABAN TOSYLATE
     Indication: Atrial fibrillation
     Dosage: 15 MG, QD
     Route: 048
     Dates: end: 20211027
  2. UNSPECIFIED INGREDIENT [Suspect]
     Active Substance: UNSPECIFIED INGREDIENT
     Indication: Lymphoma
     Dosage: UNK
     Route: 065

REACTIONS (2)
  - Gastric haemorrhage [Recovered/Resolved]
  - Death [Fatal]

NARRATIVE: CASE EVENT DATE: 20211027
